FAERS Safety Report 7593533-0 (Version None)
Quarter: 2011Q3

REPORT INFORMATION
  Report Type: 
  Country: None (occurrence: None)
  Receive Date: 20110706
  Receipt Date: 20110513
  Transmission Date: 20111222
  Serious: Yes (Other)
  Sender: FDA-Public Use
  Company Number: US-ELI_LILLY_AND_COMPANY-US201107000025

PATIENT
  Sex: Male

DRUGS (1)
  1. ALIMTA [Suspect]
     Indication: BLADDER CANCER
     Dosage: 1000 MG, UNKNOWN

REACTIONS (2)
  - OFF LABEL USE [None]
  - METASTASES TO LUNG [None]
